FAERS Safety Report 21734444 (Version 2)
Quarter: 2023Q1

REPORT INFORMATION
  Report Type: Spontaneous
  Country: US (occurrence: US)
  Receive Date: 20221215
  Receipt Date: 20230309
  Transmission Date: 20230418
  Serious: Yes (Hospitalization, Other)
  Sender: FDA-Public Use
  Company Number: US-SA-SAC20221214000325

PATIENT
  Sex: Male

DRUGS (1)
  1. DUPIXENT [Suspect]
     Active Substance: DUPILUMAB
     Indication: Dermatitis atopic
     Dosage: 300 MG, Q4W
     Route: 058
     Dates: start: 20220928

REACTIONS (4)
  - Pharyngitis streptococcal [Recovered/Resolved]
  - Osteomyelitis [Recovered/Resolved]
  - Sepsis [Recovered/Resolved]
  - Arthritis reactive [Recovered/Resolved]
